FAERS Safety Report 7966438-0 (Version None)
Quarter: 2011Q4

REPORT INFORMATION
  Report Type: 
  Country: None (occurrence: None)
  Receive Date: 20111208
  Receipt Date: 20110215
  Transmission Date: 20120403
  Serious: Yes (Other)
  Sender: FDA-Public Use
  Company Number: CA-ROCHE-729646

PATIENT
  Sex: Male
  Weight: 88 kg

DRUGS (8)
  1. NAPROXEN [Concomitant]
     Dates: start: 20100720, end: 20100721
  2. VEMURAFENIB [Suspect]
     Indication: MALIGNANT MELANOMA
     Dosage: PERMANENTLY DISCONTINUED.
     Route: 048
     Dates: start: 20100721, end: 20100923
  3. LIPITOR [Concomitant]
     Dates: start: 20040101, end: 20100720
  4. MULTI-VITAMIN [Concomitant]
     Dosage: TOTAL DAILY DOSE: 01 TABLET
  5. FISH OIL [Concomitant]
     Dosage: TOTAL DAILY DOSE: 01 TABLET. REPORTED AS OMEGA 3-6-9 (FISH OIL)
  6. WARFARIN SODIUM [Concomitant]
  7. ACETAMINOPHEN [Concomitant]
     Dosage: FREQUENCY: PRN (AS NECESSARY)
  8. TOIN [Concomitant]

REACTIONS (1)
  - DIPLOPIA [None]
